FAERS Safety Report 7314946-8 (Version None)
Quarter: 2011Q1

REPORT INFORMATION
  Report Type: 
  Country: None (occurrence: None)
  Receive Date: 20110225
  Receipt Date: 20100210
  Transmission Date: 20110831
  Serious: No
  Sender: FDA-Public Use
  Company Number: US-MYLANLABS-2010S1002335

PATIENT
  Age: 42 Year
  Sex: Male

DRUGS (3)
  1. AMNESTEEM [Suspect]
     Indication: ACNE
     Route: 048
     Dates: start: 20091201, end: 20091201
  2. AMNESTEEM [Suspect]
     Route: 048
     Dates: start: 20091201, end: 20100209
  3. AMNESTEEM [Suspect]
     Route: 048
     Dates: start: 20100209

REACTIONS (3)
  - DRY SKIN [None]
  - LIP DRY [None]
  - LIP EXFOLIATION [None]
